FAERS Safety Report 25495384 (Version 1)
Quarter: 2025Q2

REPORT INFORMATION
  Report Type: Spontaneous
  Country: US (occurrence: US)
  Receive Date: 20250630
  Receipt Date: 20250630
  Transmission Date: 20250716
  Serious: No
  Sender: FOUNDATION CONSUMER HEALTHCARE
  Company Number: US-FOUNDATIONCONSUMERHC-2025-US-003323

PATIENT
  Age: 27 Year
  Sex: Female
  Weight: 74.84 kg

DRUGS (3)
  1. PLAN B ONE-STEP [Suspect]
     Active Substance: LEVONORGESTREL
     Indication: Post coital contraception
     Route: 048
     Dates: start: 202411, end: 20250120
  2. EXCEDRIN EXTRA STRENGTH [Concomitant]
     Active Substance: ACETAMINOPHEN\ASPIRIN\CAFFEINE
  3. OPILL [Concomitant]
     Active Substance: NORGESTREL

REACTIONS (7)
  - Intentional product misuse [Recovered/Resolved]
  - Vaginal haemorrhage [Not Recovered/Not Resolved]
  - Product use in unapproved indication [Recovered/Resolved]
  - Abdominal discomfort [Not Recovered/Not Resolved]
  - Vaginal haemorrhage [Recovered/Resolved]
  - Muscle spasms [Recovered/Resolved]
  - Heavy menstrual bleeding [Recovered/Resolved]

NARRATIVE: CASE EVENT DATE: 20241101
